FAERS Safety Report 6544507-X (Version None)
Quarter: 2010Q1

REPORT INFORMATION
  Report Type: 
  Country: None (occurrence: None)
  Receive Date: 20100120
  Receipt Date: 20100120
  Transmission Date: 20100710
  Serious: Yes (Other)
  Sender: FDA-Public Use
  Company Number: None

PATIENT
  Sex: Female
  Weight: 70.3075 kg

DRUGS (1)
  1. ALLI [Suspect]
     Indication: WEIGHT CONTROL
     Dosage: 1 CAPSULE 2 TO 3 TIMES DAILY PO
     Route: 048
     Dates: start: 20090101, end: 20090824

REACTIONS (7)
  - ABDOMINAL DISTENSION [None]
  - BACK PAIN [None]
  - GALLBLADDER DISORDER [None]
  - GASTROINTESTINAL SOUNDS ABNORMAL [None]
  - PANCREATITIS [None]
  - SOCIAL ALCOHOL DRINKER [None]
  - TOBACCO USER [None]
